FAERS Safety Report 7739844-7 (Version None)
Quarter: 2011Q3

REPORT INFORMATION
  Report Type: 
  Country: None (occurrence: None)
  Receive Date: 20110909
  Receipt Date: 20110902
  Transmission Date: 20111222
  Serious: Yes (Hospitalization)
  Sender: FDA-Public Use
  Company Number: PHHY2011JP79846

PATIENT
  Age: 89 Year
  Sex: Female

DRUGS (4)
  1. DIURETICS [Concomitant]
     Dosage: UNK UKN, UNK
  2. RIVASTIGMINE [Suspect]
     Indication: DEMENTIA ALZHEIMER'S TYPE
     Dosage: 4.5 MG, DAILY
     Route: 062
     Dates: start: 20110806
  3. LAXATIVES [Concomitant]
     Dosage: UNK UKN, UNK
  4. ANTIALLERGIC AGENTS, EXCL CORTICOSTEROIDS [Concomitant]
     Dosage: UNK UKN, UNK

REACTIONS (3)
  - PNEUMONIA ASPIRATION [None]
  - VOMITING [None]
  - NAUSEA [None]
